FAERS Safety Report 6310703-X (Version None)
Quarter: 2009Q3

REPORT INFORMATION
  Report Type: 
  Country: None (occurrence: None)
  Receive Date: 20090814
  Receipt Date: 20090713
  Transmission Date: 20100115
  Serious: Yes (Death, Life-Threatening, Hospitalization, Disabling, Other)
  Sender: FDA-Public Use
  Company Number: US-MERCK-0907USA00095

PATIENT
  Age: 39 Year
  Sex: Female
  Weight: 78 kg

DRUGS (8)
  1. ISENTRESS [Suspect]
     Indication: HIV INFECTION
     Route: 048
     Dates: start: 20090501, end: 20090521
  2. ISENTRESS [Suspect]
     Indication: ACQUIRED IMMUNODEFICIENCY SYNDROME
     Route: 048
     Dates: start: 20090501, end: 20090521
  3. ETRAVIRINE [Suspect]
     Indication: HIV INFECTION
     Route: 065
     Dates: start: 20090501, end: 20090521
  4. TRUVADA [Suspect]
     Indication: HIV INFECTION
     Route: 065
     Dates: start: 20090501, end: 20090521
  5. DAPSONE [Concomitant]
     Indication: PROPHYLAXIS AGAINST HIV INFECTION
     Route: 065
     Dates: start: 20080101, end: 20090101
  6. AZITHROMYCIN [Concomitant]
     Indication: PROPHYLAXIS AGAINST HIV INFECTION
     Route: 065
     Dates: start: 20080101, end: 20090101
  7. FLUCONAZOLE [Concomitant]
     Indication: PROPHYLAXIS AGAINST HIV INFECTION
     Route: 065
     Dates: start: 20080101, end: 20090101
  8. MOXIFLOXACIN HYDROCHLORIDE [Suspect]
     Route: 065

REACTIONS (4)
  - ACUTE HEPATIC FAILURE [None]
  - BRONCHOPNEUMONIA [None]
  - DRUG TOXICITY [None]
  - MULTI-ORGAN FAILURE [None]
